FAERS Safety Report 9880771 (Version 1)
Quarter: 2014Q1

REPORT INFORMATION
  Report Type: Spontaneous
  Country: IT (occurrence: None)
  Receive Date: 20140205
  Receipt Date: 20140205
  Transmission Date: 20141002
  Serious: Yes (Other)
  Sender: FDA-Public Use
  Company Number: 2152336

PATIENT
  Age: 65 Year
  Sex: Female

DRUGS (5)
  1. GEMCITABINE HYDROCHLORIDE [Suspect]
     Indication: PANCREATIC CARCINOMA
  2. INSULIN [Concomitant]
  3. ALDACTONE [Concomitant]
  4. DILATREND [Concomitant]
  5. CARDIOASPIRIN [Concomitant]

REACTIONS (10)
  - Capillary leak syndrome [None]
  - Pulmonary hypertension [None]
  - Generalised oedema [None]
  - Blood lactate dehydrogenase increased [None]
  - Fibrin D dimer increased [None]
  - Protein total decreased [None]
  - Ascites [None]
  - Renal failure [None]
  - Vasoconstriction [None]
  - Pleural effusion [None]
